FAERS Safety Report 15155935 (Version 1)
Quarter: 2018Q3

REPORT INFORMATION
  Report Type: Spontaneous
  Country: GB (occurrence: GB)
  Receive Date: 20180717
  Receipt Date: 20180717
  Transmission Date: 20181010
  Serious: Yes (Hospitalization)
  Sender: FDA-Public Use
  Company Number: GB-US WORLDMEDS, LLC-STA_00019888

PATIENT
  Sex: Female

DRUGS (3)
  1. COMTESS [Concomitant]
     Active Substance: ENTACAPONE
     Indication: PARKINSON^S DISEASE
  2. MADOPAR [Concomitant]
     Active Substance: BENSERAZIDE HYDROCHLORIDE\LEVODOPA
     Indication: PARKINSON^S DISEASE
  3. APOMORPHINE HYDROCHLORIDE [Suspect]
     Active Substance: APOMORPHINE HYDROCHLORIDE
     Indication: PARKINSON^S DISEASE
     Route: 058
     Dates: start: 200705, end: 20080103

REACTIONS (7)
  - Infusion site necrosis [Recovered/Resolved]
  - Hallucination [Unknown]
  - Skin mass [Not Recovered/Not Resolved]
  - Infusion site infection [Recovered/Resolved]
  - Infusion site haematoma [Unknown]
  - Infusion site pain [Unknown]
  - Panniculitis [Recovered/Resolved]
